FAERS Safety Report 21981198 (Version 2)
Quarter: 2023Q1

REPORT INFORMATION
  Report Type: Report from Study
  Country: GB (occurrence: GB)
  Receive Date: 20230211
  Receipt Date: 20230218
  Transmission Date: 20230418
  Serious: Yes (Other)
  Sender: FDA-Public Use
  Company Number: GB-002147023-NVSC2023GB026185

PATIENT
  Sex: Female

DRUGS (1)
  1. KESIMPTA [Suspect]
     Active Substance: OFATUMUMAB
     Indication: Multiple sclerosis
     Dosage: 20 MG, QMO
     Route: 065
     Dates: start: 20230118

REACTIONS (4)
  - Syncope [Unknown]
  - Dizziness [Unknown]
  - Fear of injection [Unknown]
  - Fall [Unknown]

NARRATIVE: CASE EVENT DATE: 20230201
